FAERS Safety Report 5096931-2 (Version None)
Quarter: 2006Q3

REPORT INFORMATION
  Report Type: 
  Country: None (occurrence: None)
  Receive Date: 20060831
  Receipt Date: 20060831
  Transmission Date: 20061208
  Serious: Yes (Hospitalization)
  Sender: FDA-Public Use
  Company Number: None

PATIENT
  Age: 54 Year
  Sex: Female
  Weight: 72.1219 kg

DRUGS (13)
  1. RITONAVIR 100MG ABBOTT [Suspect]
     Indication: HIV INFECTION
     Dosage: 100MG DAILY PO } 1 YEAR
     Route: 048
  2. ATAZANAVIR 300MG BMS [Suspect]
     Indication: HIV INFECTION
     Dosage: 300MG DAILY PO } 1 YEAR
     Route: 048
  3. ABACAVIR/LAMUVIDINE [Concomitant]
  4. TRAZODONE HCL [Concomitant]
  5. PROMETHAZINE [Concomitant]
  6. HYDROCODONE BITARTRATE + ACETAMINOPHEN [Concomitant]
  7. ESOMEPRAZOLE MAGNESIUM [Concomitant]
  8. SIMVASTATIN [Concomitant]
  9. TENOFOVIR [Concomitant]
  10. ABACAVIR [Concomitant]
  11. LAMUVIDINE [Concomitant]
  12. CITALOPRAM [Concomitant]
  13. PREMARIN [Concomitant]

REACTIONS (8)
  - DIARRHOEA [None]
  - DRUG INTERACTION [None]
  - HYPERTENSION [None]
  - HYPOTENSION [None]
  - MIGRAINE [None]
  - NAUSEA [None]
  - SYNCOPE [None]
  - VOMITING [None]
